FAERS Safety Report 6160622-7 (Version None)
Quarter: 2009Q2

REPORT INFORMATION
  Report Type: 
  Country: None (occurrence: None)
  Receive Date: 20090416
  Receipt Date: 20090402
  Transmission Date: 20091009
  Serious: Yes (Other)
  Sender: FDA-Public Use
  Company Number: 2009001002

PATIENT
  Age: 69 Year
  Sex: Male
  Weight: 184 kg

DRUGS (5)
  1. ERLOTINIB (ERLOTINIB) (TABLET) (ERLOTINIB) [Suspect]
     Indication: OESOPHAGEAL CARCINOMA
     Dosage: 150 MG, QD), ORAL
     Route: 048
     Dates: start: 20081228
  2. BEVACIZUMAB (INJECTION FOR INFUSION) [Suspect]
     Indication: OESOPHAGEAL CARCINOMA
     Dosage: 15 MG/KGM DAYS 1 AND 22), INTRAVENOUS
     Route: 042
     Dates: start: 20081117
  3. PACLITAXEL [Suspect]
     Indication: OESOPHAGEAL CARCINOMA
     Dosage: 200 MG/M2, DAYS 1 AND 22
     Dates: start: 20081117
  4. CARBOPLATIN [Suspect]
     Indication: OESOPHAGEAL CARCINOMA
     Dosage: 5 AUC, DAYS 1 AND 22), INTRAVENOUS
     Route: 042
     Dates: start: 20081117
  5. FLUOROURACIL [Suspect]
     Indication: OESOPHAGEAL CARCINOMA
     Dosage: 225 MG, DAY 1-35, INTRAVENOUS
     Dates: start: 20081117

REACTIONS (2)
  - DEEP VEIN THROMBOSIS [None]
  - PULMONARY EMBOLISM [None]
